FAERS Safety Report 7705322-4 (Version None)
Quarter: 2011Q3

REPORT INFORMATION
  Report Type: 
  Country: None (occurrence: None)
  Receive Date: 20110818
  Receipt Date: 20110802
  Transmission Date: 20111222
  Serious: Yes (Hospitalization)
  Sender: FDA-Public Use
  Company Number: 2011MA010857

PATIENT
  Age: 75 Year
  Sex: Female

DRUGS (5)
  1. METOPROLOL TARTRATE [Suspect]
     Dosage: 25 MG;QD;
  2. VALSARTAN [Suspect]
     Dosage: 160 MG;QD;
  3. SERTRALINE HYDROCHLORIDE [Suspect]
     Indication: DEPRESSION
     Dosage: 50 MG;QD;
  4. INSULIN (INSULIN) [Suspect]
     Dosage: ;SC
     Route: 058
  5. ISOSORBIDE (ISOSORBIDE) [Suspect]
     Dosage: 40 MG;QD;

REACTIONS (6)
  - CEREBRAL SMALL VESSEL ISCHAEMIC DISEASE [None]
  - LACUNAR INFARCTION [None]
  - MANIA [None]
  - CEREBRAL HYPOPERFUSION [None]
  - CAROTID ARTERY STENOSIS [None]
  - CEREBRAL ARTERY STENOSIS [None]
